FAERS Safety Report 12594879 (Version 2)
Quarter: 2016Q3

REPORT INFORMATION
  Report Type: Spontaneous
  Country: CH (occurrence: CH)
  Receive Date: 20160726
  Receipt Date: 20160729
  Transmission Date: 20161109
  Serious: Yes (Hospitalization, Other)
  Sender: FDA-Public Use
  Company Number: CH-PFIZER INC-2016353981

PATIENT
  Age: 67 Year
  Sex: Female
  Weight: 36 kg

DRUGS (3)
  1. PANTOZOL [Suspect]
     Active Substance: PANTOPRAZOLE SODIUM
     Dosage: 40 MG, 1X/DAY
     Route: 048
     Dates: end: 201605
  2. MORPHINI HYDROCHLORIDUM STREULI [Suspect]
     Active Substance: MORPHINE HYDROCHLORIDE
     Indication: DIARRHOEA
     Dosage: THREE TIMES DAILY
     Route: 048
     Dates: start: 2016, end: 201605
  3. EFFEXOR [Concomitant]
     Active Substance: VENLAFAXINE HYDROCHLORIDE
     Dosage: 37.5 MG, QD
     Route: 048

REACTIONS (3)
  - Off label use [Unknown]
  - Ileus paralytic [Recovered/Resolved]
  - Hypomagnesaemia [Recovered/Resolved]

NARRATIVE: CASE EVENT DATE: 2016
